FAERS Safety Report 11195285 (Version 1)
Quarter: 2015Q2

REPORT INFORMATION
  Report Type: Spontaneous
  Country: US (occurrence: None)
  Receive Date: 20150603
  Receipt Date: 20150603
  Transmission Date: 20150821
  Serious: No
  Sender: FDA-Public Use
  Company Number: 2014TASUS000624

PATIENT
  Age: 52 Year
  Sex: Female

DRUGS (10)
  1. MECLIZINE HCL (MECLOZINE HYDROCHLORIDE) [Concomitant]
  2. ASPIRIN (ACETYLSALICYLIC ACID) [Concomitant]
     Active Substance: ASPIRIN
  3. ISOSORBIDE MONONITRATE (ISOSORBIDE MONONITRATE) [Concomitant]
     Active Substance: ISOSORBIDE MONONITRATE
  4. PROAIR HFA [Concomitant]
     Active Substance: ALBUTEROL SULFATE
  5. HETLIOZ [Suspect]
     Active Substance: TASIMELTEON
     Indication: CIRCADIAN RHYTHM SLEEP DISORDER
     Route: 048
     Dates: start: 20141125
  6. METFORMIN HCL (METFORMIN HYDROCHLORIDE) [Concomitant]
     Active Substance: METFORMIN HYDROCHLORIDE
  7. TESSALON (BENZONATATE) [Concomitant]
  8. DUREZOL [Concomitant]
     Active Substance: DIFLUPREDNATE
  9. GABAPENTIN (GABAPENTIN) [Concomitant]
     Active Substance: GABAPENTIN
  10. LOSARTAN POTASSIUM (LOSARTAN POTASSIUM) [Concomitant]
     Active Substance: LOSARTAN POTASSIUM

REACTIONS (3)
  - Insomnia [None]
  - Drug ineffective [None]
  - Incorrect drug administration duration [None]
